FAERS Safety Report 17464441 (Version 1)
Quarter: 2020Q1

REPORT INFORMATION
  Report Type: Spontaneous
  Country: PL (occurrence: PL)
  Receive Date: 20200226
  Receipt Date: 20200226
  Transmission Date: 20200409
  Serious: Yes (Death, Other)
  Sender: FDA-Public Use
  Company Number: PL-FRESENIUS KABI-FK202001973

PATIENT
  Age: 64 Year
  Sex: Female

DRUGS (10)
  1. MORPHINE [Suspect]
     Active Substance: MORPHINE
     Indication: PAIN
     Route: 048
  2. OLANZAPINE. [Suspect]
     Active Substance: OLANZAPINE
     Indication: INSOMNIA
     Route: 065
  3. FLUCONAZOLE. [Suspect]
     Active Substance: FLUCONAZOLE
     Indication: ANTIFUNGAL TREATMENT
     Dosage: PERIODICALLY
     Route: 065
  4. FUROSEMIDE (MANUFACTURER UNKNOWN) [Suspect]
     Active Substance: FUROSEMIDE
     Route: 065
  5. OLANZAPINE. [Suspect]
     Active Substance: OLANZAPINE
     Indication: NAUSEA
  6. HEPARIN SODIUM. [Concomitant]
     Active Substance: HEPARIN SODIUM
     Indication: PROPHYLAXIS
     Dosage: UNKNOWN
     Route: 065
  7. HEPARIN SODIUM. [Concomitant]
     Active Substance: HEPARIN SODIUM
     Indication: NAUSEA
  8. AMITRIPTYLINE [Suspect]
     Active Substance: AMITRIPTYLINE
     Indication: PAIN
     Route: 048
  9. FLUCONAZOLE. [Suspect]
     Active Substance: FLUCONAZOLE
     Indication: NAUSEA
     Route: 065
  10. FUROSEMIDE (MANUFACTURER UNKNOWN) [Suspect]
     Active Substance: FUROSEMIDE
     Indication: OEDEMA PERIPHERAL
     Dosage: UNKNOWN
     Route: 065

REACTIONS (3)
  - Condition aggravated [Not Recovered/Not Resolved]
  - Pulmonary embolism [Fatal]
  - Cardiac arrest [Fatal]
